FAERS Safety Report 8019133-6 (Version None)
Quarter: 2012Q1

REPORT INFORMATION
  Report Type: 
  Country: None (occurrence: None)
  Receive Date: 20120103
  Receipt Date: 20111228
  Transmission Date: 20120608
  Serious: Yes (Hospitalization, Other)
  Sender: FDA-Public Use
  Company Number: US-BAYER-200825698NA

PATIENT
  Age: 53 Year
  Sex: Male

DRUGS (15)
  1. BETASERON [Suspect]
     Indication: PRIMARY PROGRESSIVE MULTIPLE SCLEROSIS
     Route: 058
     Dates: start: 20021218, end: 20060501
  2. BETASERON [Suspect]
     Dosage: BETAJECT
     Route: 058
     Dates: start: 20090101, end: 20111010
  3. BLOOD PRESSURE MEDICATION (NOS) [Concomitant]
     Indication: HYPERTENSION
     Route: 048
  4. CORTICOSTEROIDS [Concomitant]
     Route: 042
     Dates: end: 20080608
  5. CORTICOSTEROIDS [Concomitant]
     Route: 048
     Dates: start: 20080608, end: 20080612
  6. BETASERON [Suspect]
     Route: 058
     Dates: start: 20080612, end: 20080617
  7. BETASERON [Suspect]
     Route: 058
     Dates: start: 20081001
  8. COPAXONE [Concomitant]
     Dates: start: 20080618, end: 20080711
  9. OXYGEN [Concomitant]
  10. VACCINE AGAINST INFLUENZA [Suspect]
     Indication: PROPHYLAXIS
     Dosage: UNK
     Dates: start: 20111201
  11. BETASERON [Suspect]
     Route: 058
     Dates: start: 20080715, end: 20081001
  12. BETASERON [Suspect]
     Dosage: 8 MIU, QOD
     Route: 058
     Dates: start: 20111031
  13. DIURETICS [Concomitant]
     Indication: MULTIPLE SCLEROSIS
     Route: 048
  14. COPAXONE [Concomitant]
     Indication: MULTIPLE SCLEROSIS
     Dates: start: 20060601, end: 20080611
  15. NAPROXEN (ALEVE) [Concomitant]
     Indication: PREMEDICATION

REACTIONS (41)
  - FEELING ABNORMAL [None]
  - GAIT DISTURBANCE [None]
  - DIARRHOEA [None]
  - HYPOTENSION [None]
  - DEVICE MATERIAL ISSUE [None]
  - WEIGHT DECREASED [None]
  - FALL [None]
  - NECK PAIN [None]
  - TREMOR [None]
  - CORONARY ARTERY THROMBOSIS [None]
  - FACE INJURY [None]
  - CONVULSION [None]
  - CONFUSIONAL STATE [None]
  - INCONTINENCE [None]
  - CHEST PAIN [None]
  - AGITATION [None]
  - RESPIRATORY ARREST [None]
  - GRAND MAL CONVULSION [None]
  - FATIGUE [None]
  - MUSCULOSKELETAL STIFFNESS [None]
  - PSYCHOMOTOR HYPERACTIVITY [None]
  - SLEEP APNOEA SYNDROME [None]
  - HIP FRACTURE [None]
  - ARTHRALGIA [None]
  - FEELING COLD [None]
  - INSOMNIA [None]
  - MULTIPLE SCLEROSIS [None]
  - SYNCOPE [None]
  - AMNESIA [None]
  - URINARY TRACT INFECTION [None]
  - INCOHERENT [None]
  - SUPERFICIAL INJURY OF EYE [None]
  - EYE HAEMORRHAGE [None]
  - MOBILITY DECREASED [None]
  - WOUND HAEMORRHAGE [None]
  - ANTICONVULSANT DRUG LEVEL DECREASED [None]
  - DYSKINESIA [None]
  - BLOOD POTASSIUM DECREASED [None]
  - DEPRESSION [None]
  - LOSS OF CONSCIOUSNESS [None]
  - CHILLS [None]
